FAERS Safety Report 14634967 (Version 1)
Quarter: 2018Q1

REPORT INFORMATION
  Report Type: Spontaneous
  Country: US (occurrence: US)
  Receive Date: 20180313
  Receipt Date: 20180313
  Transmission Date: 20180509
  Serious: No
  Sender: FDA-Public Use
  Company Number: None

PATIENT
  Age: 42 Year
  Sex: Male

DRUGS (6)
  1. PRIMATENE [Concomitant]
     Active Substance: EPHEDRINE HYDROCHLORIDE\GUAIFENESIN
  2. SILDENAFIL. [Concomitant]
     Active Substance: SILDENAFIL
  3. TYLENOL [Concomitant]
     Active Substance: ACETAMINOPHEN
  4. CIMZIA [Suspect]
     Active Substance: CERTOLIZUMAB PEGOL
     Indication: CROHN^S DISEASE
     Dosage: INJECT 2 (200MG)SYRINGES EVERY FOUR WEEKS SUBCUTANEOUS
     Route: 058
     Dates: start: 20170620
  5. ESCITALOPRAM [Concomitant]
     Active Substance: ESCITALOPRAM OXALATE
  6. CYANOCOBALAM [Concomitant]

REACTIONS (1)
  - Malaise [None]
